FAERS Safety Report 17894794 (Version 1)
Quarter: 2020Q2

REPORT INFORMATION
  Report Type: Spontaneous
  Country: US (occurrence: US)
  Receive Date: 20200614
  Receipt Date: 20200614
  Transmission Date: 20200714
  Serious: Yes (Other)
  Sender: FDA-Public Use
  Company Number: None

PATIENT
  Age: 64 Year
  Sex: Female
  Weight: 93 kg

DRUGS (9)
  1. ENOXAPARIN 40MG [Concomitant]
     Active Substance: ENOXAPARIN
     Dates: start: 20200612
  2. ACETAMINOPHEN 650 MG [Concomitant]
     Active Substance: ACETAMINOPHEN
     Dates: start: 20200611
  3. ATORVASTATIN 500MG [Concomitant]
     Dates: start: 20200611
  4. REMDESIVIR. [Suspect]
     Active Substance: REMDESIVIR
     Indication: COVID-19
     Route: 041
     Dates: start: 20200612
  5. THIAMINE 100MG [Concomitant]
     Dates: start: 20200612
  6. AZITHROMYCIN 500MG [Concomitant]
     Active Substance: AZITHROMYCIN
     Dates: start: 20200612
  7. VITAMIN D3 5000 UNITS [Concomitant]
     Dates: start: 20200612
  8. ZINC SULFATE 220 [Concomitant]
     Dates: start: 20200612
  9. CEFTRIAXONE 1 GM [Concomitant]
     Active Substance: CEFTRIAXONE
     Dates: start: 20200611

REACTIONS (2)
  - Infusion site extravasation [None]
  - Infusion site swelling [None]

NARRATIVE: CASE EVENT DATE: 20200614
